FAERS Safety Report 5655856-1 (Version None)
Quarter: 2008Q1

REPORT INFORMATION
  Report Type: 
  Country: None (occurrence: None)
  Receive Date: 20080307
  Receipt Date: 20080226
  Transmission Date: 20080703
  Serious: Yes (Other)
  Sender: FDA-Public Use
  Company Number: US-PFIZER INC-2008016607

PATIENT
  Sex: Male
  Weight: 70 kg

DRUGS (1)
  1. CHANTIX [Suspect]
     Indication: SMOKING CESSATION THERAPY
     Dates: start: 20071201, end: 20080217

REACTIONS (12)
  - ABNORMAL DREAMS [None]
  - BLINDNESS [None]
  - BLOOD GLUCOSE INCREASED [None]
  - DISTURBANCE IN ATTENTION [None]
  - DRY MOUTH [None]
  - HYPOAESTHESIA [None]
  - MALAISE [None]
  - OCULAR ICTERUS [None]
  - SLEEP DISORDER [None]
  - THIRST [None]
  - VISION BLURRED [None]
  - WEIGHT DECREASED [None]
